FAERS Safety Report 5600292-7 (Version None)
Quarter: 2007Q4

REPORT INFORMATION
  Report Type: 
  Country: None (occurrence: None)
  Receive Date: 20071226
  Receipt Date: 20061213
  Transmission Date: 20080405
  Serious: Yes (Hospitalization)
  Sender: FDA-Public Use
  Company Number: 232832

PATIENT

DRUGS (1)
  1. RAPTIVA [Suspect]
     Indication: PSORIASIS
     Dates: start: 20050101

REACTIONS (1)
  - MENINGITIS ASEPTIC [None]
